FAERS Safety Report 4771041-X (Version None)
Quarter: 2005Q3

REPORT INFORMATION
  Report Type: 
  Country: None (occurrence: None)
  Receive Date: 20050914
  Receipt Date: 20050901
  Transmission Date: 20060218
  Serious: Yes (Death, Other)
  Sender: FDA-Public Use
  Company Number: 2005123545

PATIENT
  Age: 77 Year
  Sex: 0

DRUGS (2)
  1. PREDNISONE [Suspect]
     Indication: ILL-DEFINED DISORDER
     Dosage: 7.5 MG
  2. IBUPROFEN [Concomitant]

REACTIONS (2)
  - INTESTINAL PERFORATION [None]
  - SUDDEN DEATH [None]
